FAERS Safety Report 4268759-4 (Version None)
Quarter: 2004Q1

REPORT INFORMATION
  Report Type: 
  Country: None (occurrence: None)
  Receive Date: 20040112
  Receipt Date: 20040112
  Transmission Date: 20041129
  Serious: Yes (Other)
  Sender: FDA-Public Use
  Company Number: None

PATIENT
  Age: 29 Year
  Sex: Female
  Weight: 84.8226 kg

DRUGS (2)
  1. PAXIL [Suspect]
     Dosage: 15 MG EVERY 2 DA ORAL
     Route: 048
  2. PAROXETINE HCL [Suspect]
     Dosage: 15 MG EVERY 2 DA ORAL
     Route: 048

REACTIONS (7)
  - DISTURBANCE IN ATTENTION [None]
  - DRUG WITHDRAWAL SYNDROME [None]
  - EMOTIONAL DISORDER [None]
  - FEELING ABNORMAL [None]
  - IMPAIRED WORK ABILITY [None]
  - INFLUENZA LIKE ILLNESS [None]
  - VISUAL DISTURBANCE [None]
